FAERS Safety Report 16040823 (Version 3)
Quarter: 2019Q1

REPORT INFORMATION
  Report Type: Report from Study
  Country: None (occurrence: SE)
  Receive Date: 20190306
  Receipt Date: 20190326
  Transmission Date: 20190418
  Serious: Yes (Death, Other)
  Sender: FDA-Public Use
  Company Number: SE-ABBVIE-19S-150-2690265-00

PATIENT
  Sex: Male
  Weight: 60 kg

DRUGS (2)
  1. DUODOPA [Suspect]
     Active Substance: CARBIDOPA\LEVODOPA
     Indication: PARKINSON^S DISEASE
     Route: 050
     Dates: start: 20140922
  2. DUODOPA [Suspect]
     Active Substance: CARBIDOPA\LEVODOPA
     Route: 050
     Dates: start: 20141104

REACTIONS (7)
  - Embedded device [Not Recovered/Not Resolved]
  - Increased bronchial secretion [Not Recovered/Not Resolved]
  - Mobility decreased [Unknown]
  - Cardiac disorder [Fatal]
  - Cardiac fibrillation [Not Recovered/Not Resolved]
  - Intentional product misuse [Recovered/Resolved]
  - Musculoskeletal stiffness [Unknown]

NARRATIVE: CASE EVENT DATE: 2018
